FAERS Safety Report 11173400 (Version 1)
Quarter: 2015Q2

REPORT INFORMATION
  Report Type: Spontaneous
  Country: BG (occurrence: BG)
  Receive Date: 20150608
  Receipt Date: 20150608
  Transmission Date: 20150821
  Serious: Yes (Other)
  Sender: FDA-Public Use
  Company Number: BG-ABBVIE-15K-022-1401706-00

PATIENT
  Age: 52 Year
  Sex: Female
  Weight: 48 kg

DRUGS (2)
  1. METHOTREXATE [Concomitant]
     Active Substance: METHOTREXATE
     Indication: PRODUCT USED FOR UNKNOWN INDICATION
  2. HUMIRA [Suspect]
     Active Substance: ADALIMUMAB
     Indication: RHEUMATOID ARTHRITIS
     Route: 065
     Dates: start: 201403, end: 201505

REACTIONS (3)
  - Joint swelling [Unknown]
  - Arthralgia [Unknown]
  - Melaena [Unknown]

NARRATIVE: CASE EVENT DATE: 201503
